FAERS Safety Report 7497264-7 (Version None)
Quarter: 2011Q2

REPORT INFORMATION
  Report Type: 
  Country: None (occurrence: None)
  Receive Date: 20110523
  Receipt Date: 20110510
  Transmission Date: 20111010
  Serious: Yes (Hospitalization, Other)
  Sender: FDA-Public Use
  Company Number: PHHY2009CA42878

PATIENT
  Sex: Female

DRUGS (4)
  1. SANDOSTATIN LAR [Suspect]
     Dosage: 50 MG, TIW
     Route: 030
  2. SANDOSTATIN LAR [Suspect]
     Dosage: 60 MG, EVERY 2 WEEKS
     Route: 030
     Dates: start: 20070723
  3. SANDOSTATIN LAR [Suspect]
     Indication: VIPOMA
     Dosage: 50 MG EVERY 3 WEEKS
     Route: 030
     Dates: start: 20070723
  4. SANDOSTATIN LAR [Suspect]
     Dosage: 50 MG EVERY 4 WEEKS
     Route: 030

REACTIONS (10)
  - MALAISE [None]
  - INFECTION [None]
  - ABDOMINAL PAIN [None]
  - DECREASED APPETITE [None]
  - BILE DUCT STONE [None]
  - VOMITING [None]
  - DIARRHOEA [None]
  - CONSTIPATION [None]
  - NAUSEA [None]
  - ASTHENIA [None]
